FAERS Safety Report 8312998-X (Version None)
Quarter: 2012Q2

REPORT INFORMATION
  Report Type: 
  Country: None (occurrence: None)
  Receive Date: 20120426
  Receipt Date: 20120417
  Transmission Date: 20120825
  Serious: Yes (Hospitalization, Other)
  Sender: FDA-Public Use
  Company Number: US-BAYER-2011-122093

PATIENT
  Age: 16 Year
  Sex: Female
  Weight: 73 kg

DRUGS (3)
  1. YAZ [Suspect]
     Indication: PREMENSTRUAL SYNDROME
     Dosage: UNK
     Dates: start: 20081201, end: 20090301
  2. DEPO-PROVERA [Concomitant]
     Dosage: 150 MG, UNK
     Route: 030
  3. YAZ [Suspect]

REACTIONS (10)
  - DEFORMITY [None]
  - GAIT DISTURBANCE [None]
  - DYSSTASIA [None]
  - VENOUS INJURY [None]
  - ANHEDONIA [None]
  - PAIN [None]
  - DEEP VEIN THROMBOSIS [None]
  - PULMONARY EMBOLISM [None]
  - SWELLING [None]
  - ANXIETY [None]
